FAERS Safety Report 6650763-X (Version None)
Quarter: 2010Q1

REPORT INFORMATION
  Report Type: 
  Country: None (occurrence: None)
  Receive Date: 20100325
  Receipt Date: 20100301
  Transmission Date: 20100710
  Serious: No
  Sender: FDA-Public Use
  Company Number: US-BIOGENIDEC-2010BI003339

PATIENT
  Age: 30 Year
  Sex: Female

DRUGS (1)
  1. TYSABRI [Suspect]
     Indication: MULTIPLE SCLEROSIS
     Route: 042
     Dates: start: 20091221

REACTIONS (7)
  - LOSS OF CONTROL OF LEGS [None]
  - MUSCLE STRAIN [None]
  - RASH [None]
  - SENSATION OF HEAVINESS [None]
  - SKIN EXFOLIATION [None]
  - SOMNOLENCE [None]
  - YELLOW SKIN [None]
